FAERS Safety Report 16141566 (Version 1)
Quarter: 2019Q2

REPORT INFORMATION
  Report Type: Report from Study
  Country: US (occurrence: US)
  Receive Date: 20190401
  Receipt Date: 20190401
  Transmission Date: 20190711
  Serious: Yes (Hospitalization)
  Sender: FDA-Public Use
  Company Number: US-CLOVIS ONCOLOGY-CLO-2019-000123

PATIENT
  Sex: Female

DRUGS (1)
  1. RUBRACA [Suspect]
     Active Substance: RUCAPARIB CAMSYLATE
     Indication: OVARIAN CANCER
     Dosage: 600 MG, BID
     Route: 048
     Dates: start: 20190110, end: 201902

REACTIONS (9)
  - Rash [Not Recovered/Not Resolved]
  - Platelet count decreased [Unknown]
  - Blood count abnormal [Unknown]
  - Malignant neoplasm progression [Unknown]
  - Dehydration [Not Recovered/Not Resolved]
  - Increased appetite [Unknown]
  - Constipation [Not Recovered/Not Resolved]
  - White blood cell count decreased [Unknown]
  - Drug ineffective [Unknown]
